FAERS Safety Report 9564040 (Version 1)
Quarter: 2013Q3

REPORT INFORMATION
  Report Type: Spontaneous
  Country: US (occurrence: US)
  Receive Date: 20130928
  Receipt Date: 20130928
  Transmission Date: 20140515
  Serious: No
  Sender: FDA-Public Use
  Company Number: US-009507513-1309USA013391

PATIENT
  Sex: Female

DRUGS (1)
  1. MIRALAX [Suspect]
     Indication: CONSTIPATION
     Dosage: 34 G, ONCE
     Route: 048
     Dates: start: 20130920

REACTIONS (2)
  - Overdose [Unknown]
  - Drug ineffective [Unknown]
